FAERS Safety Report 25465505 (Version 1)
Quarter: 2025Q2

REPORT INFORMATION
  Report Type: Spontaneous
  Country: ES (occurrence: ES)
  Receive Date: 20250623
  Receipt Date: 20250623
  Transmission Date: 20250717
  Serious: Yes (Death, Hospitalization)
  Sender: ACCORD
  Company Number: None

PATIENT
  Age: 89 Year
  Sex: Male
  Weight: 69 kg

DRUGS (3)
  1. OXALIPLATIN [Suspect]
     Active Substance: OXALIPLATIN
     Indication: Gastric cancer stage IV
     Dates: start: 20250129, end: 20250129
  2. PEMBROLIZUMAB [Suspect]
     Active Substance: PEMBROLIZUMAB
     Indication: Gastric cancer stage IV
     Dates: start: 20250129, end: 20250129
  3. CAPECITABINE [Suspect]
     Active Substance: CAPECITABINE
     Indication: Gastric cancer stage IV
     Dosage: STRENGTH: 500 MG, CAPECITABINE VO 2500MG / 24 HOURS FROM 29-JAN-2025 WITH AN END DATE OF 07-FEB-2025
     Dates: start: 20250129, end: 20250207

REACTIONS (3)
  - Influenza [Fatal]
  - Acute respiratory failure [Fatal]
  - Metabolic acidosis [Fatal]

NARRATIVE: CASE EVENT DATE: 20250207
